FAERS Safety Report 8369437-2 (Version None)
Quarter: 2012Q2

REPORT INFORMATION
  Report Type: 
  Country: None (occurrence: None)
  Receive Date: 20120518
  Receipt Date: 20120508
  Transmission Date: 20120825
  Serious: Yes (Death, Hospitalization)
  Sender: FDA-Public Use
  Company Number: DE-JNJFOC-20120500881

PATIENT
  Age: 83 Year
  Sex: Female

DRUGS (7)
  1. NITOMAN [Concomitant]
  2. RAMIPRIL [Concomitant]
  3. SIMVASTATIN [Concomitant]
  4. STALEVO 100 [Concomitant]
  5. TIAPRIDE [Concomitant]
  6. XARELTO [Suspect]
     Indication: ATRIAL FIBRILLATION
     Route: 048
     Dates: start: 20120330, end: 20120420
  7. PARKOPAN [Concomitant]

REACTIONS (2)
  - PNEUMONIA ASPIRATION [None]
  - ANAEMIA [None]
